FAERS Safety Report 21029680 (Version 1)
Quarter: 2022Q2

REPORT INFORMATION
  Report Type: Spontaneous
  Country: US (occurrence: US)
  Receive Date: 20220630
  Receipt Date: 20220630
  Transmission Date: 20220721
  Serious: No
  Sender: FDA-Public Use
  Company Number: US-009507513-2206USA000603

PATIENT
  Age: 55 Year
  Sex: Female

DRUGS (10)
  1. KEYTRUDA [Suspect]
     Active Substance: PEMBROLIZUMAB
     Indication: Triple negative breast cancer
     Dosage: 200 MILLIGRAM, Q3W
  2. KEYTRUDA [Suspect]
     Active Substance: PEMBROLIZUMAB
     Indication: Inflammatory carcinoma of breast stage III
     Dosage: 200 MILLIGRAM, Q3W. FOR 4 CYCLES
  3. CARBOPLATIN [Suspect]
     Active Substance: CARBOPLATIN
     Indication: Triple negative breast cancer
     Dosage: AREA UNDER THE CURVE (AUC) 5, Q3W
  4. CARBOPLATIN [Suspect]
     Active Substance: CARBOPLATIN
     Indication: Inflammatory carcinoma of breast stage III
  5. PACLITAXEL [Suspect]
     Active Substance: PACLITAXEL
     Indication: Triple negative breast cancer
     Dosage: 80 MILLIGRAM/SQ. METER, QW
  6. PACLITAXEL [Suspect]
     Active Substance: PACLITAXEL
     Indication: Inflammatory carcinoma of breast stage III
  7. DOXORUBICIN [Suspect]
     Active Substance: DOXORUBICIN
     Indication: Triple negative breast cancer
     Dosage: 60 MILLIGRAM/SQ. METER, Q3W, FOR 4 CYCLES
  8. DOXORUBICIN [Suspect]
     Active Substance: DOXORUBICIN
     Indication: Inflammatory carcinoma of breast stage III
  9. CYCLOPHOSPHAMIDE [Suspect]
     Active Substance: CYCLOPHOSPHAMIDE
     Indication: Triple negative breast cancer
     Dosage: 600 MILLIGRAM/SQ. METER, Q3W, FOR 4 CYCLES
  10. CYCLOPHOSPHAMIDE [Suspect]
     Active Substance: CYCLOPHOSPHAMIDE
     Indication: Inflammatory carcinoma of breast stage III

REACTIONS (4)
  - Alopecia [Unknown]
  - Fatigue [Unknown]
  - Lymph node fibrosis [Unknown]
  - Off label use [Unknown]
